FAERS Safety Report 20724736 (Version 1)
Quarter: 2022Q2

REPORT INFORMATION
  Report Type: Spontaneous
  Country: US (occurrence: None)
  Receive Date: 20220418
  Receipt Date: 20220418
  Transmission Date: 20220721
  Serious: Yes (Other)
  Sender: FDA-Public Use
  Company Number: None

PATIENT
  Age: 19 Year
  Sex: Male
  Weight: 68.5 kg

DRUGS (4)
  1. ARIPIPRAZOLE [Suspect]
     Active Substance: ARIPIPRAZOLE
     Indication: Schizophrenia
     Dosage: FREQUENCY : DAILY;?
     Route: 048
     Dates: start: 20220105, end: 20220124
  2. ARIPIPRAZOLE [Suspect]
     Active Substance: ARIPIPRAZOLE
     Indication: Schizophrenia
     Dosage: OTHER FREQUENCY : MONTHLY;?
     Route: 030
     Dates: start: 20220105, end: 20220124
  3. Olanzapine 10mg ODT [Concomitant]
     Dates: start: 2022, end: 20220118
  4. Risperidone 3mg ODT BID [Concomitant]
     Dates: start: 2022

REACTIONS (1)
  - Dystonia [None]

NARRATIVE: CASE EVENT DATE: 20220109
